FAERS Safety Report 7283339-4 (Version None)
Quarter: 2011Q1

REPORT INFORMATION
  Report Type: 
  Country: None (occurrence: None)
  Receive Date: 20110204
  Receipt Date: 20110204
  Transmission Date: 20110831
  Serious: Yes (Hospitalization, Disabling, Other)
  Sender: FDA-Public Use
  Company Number: None

PATIENT
  Sex: Female
  Weight: 64.4108 kg

DRUGS (2)
  1. MEDROL [Suspect]
     Indication: URTICARIA
     Dosage: AS NEEDED 6-7 MONTHS ORAL
     Route: 048
     Dates: start: 20091201, end: 20100701
  2. PREDNISONE [Suspect]
     Indication: URTICARIA
     Dosage: AS NEEDED 6-7 MONTHS ORAL
     Route: 048
     Dates: start: 20091201, end: 20100701

REACTIONS (3)
  - JOINT SWELLING [None]
  - ARTHRALGIA [None]
  - IMPAIRED WORK ABILITY [None]
